FAERS Safety Report 10481554 (Version 1)
Quarter: 2014Q3

REPORT INFORMATION
  Report Type: Report from Study
  Country: US (occurrence: US)
  Receive Date: 20140929
  Receipt Date: 20140929
  Transmission Date: 20150326
  Serious: Yes (Hospitalization, Other)
  Sender: FDA-Public Use
  Company Number: US-ALEXION PHARMACEUTICALS INC-A200901531

PATIENT
  Sex: Female

DRUGS (1)
  1. SOLIRIS [Suspect]
     Active Substance: ECULIZUMAB
     Indication: PAROXYSMAL NOCTURNAL HAEMOGLOBINURIA

REACTIONS (9)
  - Biopsy bone marrow [Unknown]
  - Pneumonia [Unknown]
  - Haemoglobin decreased [Unknown]
  - Pyrexia [Unknown]
  - Fatigue [Unknown]
  - Platelet count decreased [Unknown]
  - Packed red blood cell transfusion [Unknown]
  - Central venous catheterisation [Unknown]
  - Rash [Unknown]
